FAERS Safety Report 7768501-6 (Version None)
Quarter: 2011Q3

REPORT INFORMATION
  Report Type: 
  Country: None (occurrence: None)
  Receive Date: 20110922
  Receipt Date: 20110209
  Transmission Date: 20111222
  Serious: No
  Sender: FDA-Public Use
  Company Number: US-ASTRAZENECA-2011SE07594

PATIENT
  Age: 32 Year
  Sex: Male
  Weight: 77.1 kg

DRUGS (6)
  1. LYMICTAL [Concomitant]
  2. VALIUM [Concomitant]
  3. SEROQUEL XR [Suspect]
     Indication: BIPOLAR I DISORDER
     Route: 048
     Dates: start: 20080101, end: 20110101
  4. PAXIL [Concomitant]
  5. MORPHINE [Concomitant]
  6. SOMA [Concomitant]

REACTIONS (2)
  - MOOD SWINGS [None]
  - DRUG DOSE OMISSION [None]
